FAERS Safety Report 4662379-5 (Version None)
Quarter: 2005Q2

REPORT INFORMATION
  Report Type: 
  Country: None (occurrence: None)
  Receive Date: 20050512
  Receipt Date: 20050502
  Transmission Date: 20051028
  Serious: Yes (Death)
  Sender: FDA-Public Use
  Company Number: 214165

PATIENT
  Age: 70 Year
  Sex: Male

DRUGS (6)
  1. RITUXIMAB(RITUXIMAB) CONC FOR SOLUTION FOR INFUSION [Suspect]
     Indication: NON-HODGKIN'S LYMPHOMA
     Dosage: 600  MG, 1/MONTH, INTRAVENOUS
     Route: 042
     Dates: start: 20040705, end: 20040902
  2. CYCLOPHOSPHAMIDE [Concomitant]
  3. VINCRISTINE [Suspect]
  4. ADRIAMYCIN PFS [Concomitant]
  5. PREDNISONE [Concomitant]
  6. G-CSF (FILGRASTIM) [Concomitant]

REACTIONS (2)
  - HERPES ZOSTER [None]
  - PNEUMONIA [None]
